FAERS Safety Report 5192769-6 (Version None)
Quarter: 2006Q4

REPORT INFORMATION
  Report Type: 
  Country: None (occurrence: None)
  Receive Date: 20061220
  Receipt Date: 20061207
  Transmission Date: 20070319
  Serious: Yes (Life-Threatening, Hospitalization)
  Sender: FDA-Public Use
  Company Number: 15346

PATIENT
  Age: 76 Year
  Sex: Male
  Weight: 70 kg

DRUGS (8)
  1. AMIODARONE HCL [Suspect]
     Indication: ATRIAL FIBRILLATION
     Dates: start: 20061118, end: 20061119
  2. DIAZEPAM [Concomitant]
  3. GENTAMICIN SULFATE [Concomitant]
  4. IRON SULPHIDE [Concomitant]
  5. OMEPRAZOLE [Concomitant]
  6. OXYBUTYNIN [Concomitant]
  7. TAZOCIN [Concomitant]
  8. VANCOMYCIN [Concomitant]

REACTIONS (5)
  - DRUG TOXICITY [None]
  - HEPATOCELLULAR DAMAGE [None]
  - LIVER DISORDER [None]
  - RENAL IMPAIRMENT [None]
  - RESPIRATORY FAILURE [None]
